FAERS Safety Report 13782062 (Version 2)
Quarter: 2017Q4

REPORT INFORMATION
  Report Type: Spontaneous
  Country: US (occurrence: US)
  Receive Date: 20170724
  Receipt Date: 20171208
  Transmission Date: 20180320
  Serious: Yes (Other)
  Sender: FDA-Public Use
  Company Number: US-BAYER-2017-134756

PATIENT
  Age: 39 Year
  Sex: Female
  Weight: 59.41 kg

DRUGS (6)
  1. MIRENA [Suspect]
     Active Substance: LEVONORGESTREL
     Indication: CONTRACEPTION
     Dosage: 20 MCG/24HR, CONT
     Route: 015
     Dates: start: 20150923
  2. BORIC ACID [Concomitant]
     Active Substance: BORIC ACID
     Dosage: 600 MG, UNK
     Route: 067
     Dates: start: 20171025
  3. MIRENA [Suspect]
     Active Substance: LEVONORGESTREL
  4. CRANBERRY EXTRACT [Concomitant]
     Active Substance: CRANBERRY JUICE
     Route: 048
  5. ZYRTEC-D [Concomitant]
     Active Substance: CETIRIZINE HYDROCHLORIDE\PSEUDOEPHEDRINE HYDROCHLORIDE
     Route: 048
  6. BABY ASPIRIN [Concomitant]
     Active Substance: ASPIRIN
     Route: 048

REACTIONS (6)
  - Retinal vein occlusion [None]
  - Panic attack [None]
  - Visual impairment [None]
  - Anxiety [None]
  - Vaginal infection [None]
  - Vulvovaginal discomfort [None]

NARRATIVE: CASE EVENT DATE: 201706
